APPROVED DRUG PRODUCT: CROMOLYN SODIUM
Active Ingredient: CROMOLYN SODIUM
Strength: 100MG/5ML
Dosage Form/Route: CONCENTRATE;ORAL
Application: A090954 | Product #001
Applicant: GENERA PHARMACEUTICALS LLC
Approved: Dec 18, 2009 | RLD: No | RS: No | Type: DISCN